FAERS Safety Report 15022749 (Version 2)
Quarter: 2018Q3

REPORT INFORMATION
  Report Type: Report from Study
  Country: DE (occurrence: DE)
  Receive Date: 20180618
  Receipt Date: 20180703
  Transmission Date: 20181010
  Serious: Yes (Hospitalization)
  Sender: FDA-Public Use
  Company Number: DE-PFIZER INC-2018237209

PATIENT
  Age: 42 Year
  Sex: Male
  Weight: 95 kg

DRUGS (10)
  1. CETUXIMAB. [Suspect]
     Active Substance: CETUXIMAB
     Indication: COLORECTAL CANCER METASTATIC
     Dosage: 813 MG(DOSE BEFORE ONSET OF SAE), WEEKLY
     Route: 042
     Dates: start: 20180416, end: 20180522
  2. OXALIPLATIN. [Suspect]
     Active Substance: OXALIPLATIN
     Dosage: UNK
     Dates: start: 20180604
  3. LEUCOVORIN. [Suspect]
     Active Substance: LEUCOVORIN
     Dosage: UNK
     Dates: start: 20180604
  4. AVELUMAB [Suspect]
     Active Substance: AVELUMAB
     Indication: COLORECTAL CANCER METASTATIC
     Dosage: 912 MG, ONCE EVERY TWO WEEKS
     Route: 042
     Dates: start: 20180430, end: 20180514
  5. FLUOROURACIL. [Suspect]
     Active Substance: FLUOROURACIL
     Dosage: UNK
     Route: 042
     Dates: start: 20180604
  6. CETUXIMAB. [Suspect]
     Active Substance: CETUXIMAB
     Dosage: UNK
     Route: 042
     Dates: start: 20180604
  7. OXALIPLATIN. [Suspect]
     Active Substance: OXALIPLATIN
     Indication: COLORECTAL CANCER METASTATIC
     Dosage: 173 MG, CYCLIC
     Route: 042
     Dates: start: 20180416, end: 20180514
  8. AVELUMAB [Suspect]
     Active Substance: AVELUMAB
     Dosage: UNK
     Route: 042
     Dates: start: 20180604
  9. FLUOROURACIL. [Suspect]
     Active Substance: FLUOROURACIL
     Indication: COLORECTAL CANCER METASTATIC
     Dosage: 4875 MG, CYCLIC
     Route: 042
     Dates: start: 20180416, end: 20180514
  10. LEUCOVORIN. [Suspect]
     Active Substance: LEUCOVORIN
     Indication: COLORECTAL CANCER METASTATIC
     Dosage: 813 MG, CYCLIC
     Route: 042
     Dates: start: 20180416, end: 20180514

REACTIONS (1)
  - Embolism [Recovered/Resolved]

NARRATIVE: CASE EVENT DATE: 20180528
